FAERS Safety Report 9878226 (Version 2)
Quarter: 2014Q1

REPORT INFORMATION
  Report Type: Report from Study
  Country: US (occurrence: US)
  Receive Date: 20140206
  Receipt Date: 20140304
  Transmission Date: 20141002
  Serious: Yes (Life-Threatening, Hospitalization)
  Sender: FDA-Public Use
  Company Number: US-ACTELION-A-US2014-94213

PATIENT
  Age: 88 Year
  Sex: Female

DRUGS (4)
  1. MACITENTAN [Suspect]
     Indication: PULMONARY ARTERIAL HYPERTENSION
     Dosage: 1 UNK, QD
     Route: 048
     Dates: end: 201401
  2. MACITENTAN [Suspect]
     Dosage: 1 UNK, QD
     Route: 048
     Dates: start: 201401, end: 201401
  3. REVATIO [Concomitant]
  4. TYVASO [Concomitant]

REACTIONS (5)
  - Pleural effusion [Recovering/Resolving]
  - Dyspnoea [Recovering/Resolving]
  - Fluid retention [Recovering/Resolving]
  - Fluid overload [Recovering/Resolving]
  - Renal failure acute [Recovering/Resolving]
